FAERS Safety Report 14285930 (Version 1)
Quarter: 2017Q4

REPORT INFORMATION
  Report Type: Spontaneous
  Country: US (occurrence: US)
  Receive Date: 20171214
  Receipt Date: 20171214
  Transmission Date: 20180321
  Serious: No
  Sender: FDA-Public Use
  Company Number: US-ASTELLAS-2017US028174

PATIENT
  Sex: Male

DRUGS (1)
  1. TARCEVA [Suspect]
     Active Substance: ERLOTINIB HYDROCHLORIDE
     Indication: BRONCHIAL CARCINOMA
     Route: 048
     Dates: start: 20160712

REACTIONS (9)
  - Mass [Not Recovered/Not Resolved]
  - Skin discolouration [Not Recovered/Not Resolved]
  - Vision blurred [Not Recovered/Not Resolved]
  - Rash [Not Recovered/Not Resolved]
  - Rash macular [Not Recovered/Not Resolved]
  - Pruritus [Not Recovered/Not Resolved]
  - Hordeolum [Not Recovered/Not Resolved]
  - Alopecia [Not Recovered/Not Resolved]
  - Acne [Not Recovered/Not Resolved]
